FAERS Safety Report 4428427-2 (Version None)
Quarter: 2004Q3

REPORT INFORMATION
  Report Type: 
  Country: None (occurrence: None)
  Receive Date: 20040818
  Receipt Date: 20040805
  Transmission Date: 20050211
  Serious: Yes (Death)
  Sender: FDA-Public Use
  Company Number: US-BRISTOL-MYERS SQUIBB COMPANY-12663746

PATIENT
  Age: 77 Year
  Sex: Female

DRUGS (1)
  1. MAXIPIME [Suspect]
     Indication: PROPHYLAXIS
     Route: 042
     Dates: start: 20040804

REACTIONS (1)
  - DEATH [None]
